FAERS Safety Report 8778365 (Version 1)
Quarter: 2012Q4

REPORT INFORMATION
  Report Type: 
  Country: US (occurrence: US)
  Receive Date: 20120912
  Receipt Date: 20120912
  Transmission Date: 20130627
  Serious: Yes (Other)
  Sender: FDA-Public Use
  Company Number: US-ROCHE-1101528

PATIENT
  Sex: Female

DRUGS (9)
  1. ACTIVASE [Suspect]
     Indication: ACUTE MYOCARDIAL INFARCTION
     Route: 065
     Dates: start: 19910628
  2. ACTIVASE [Suspect]
     Dosage: dose reduced
     Route: 065
  3. HEPARIN [Concomitant]
     Dosage: 5000 units
     Route: 040
     Dates: start: 19910628
  4. HEPARIN [Concomitant]
     Dosage: 20000 units in 1000 cc D5W at 50 cc
     Route: 065
  5. HEPARIN [Concomitant]
     Dosage: 50 cc/hour
     Route: 041
  6. LIDOCAINE [Concomitant]
     Route: 040
     Dates: start: 19910628
  7. LIDOCAINE [Concomitant]
     Dosage: 1000 ccD5W at 2 mg
     Route: 065
     Dates: start: 19910628
  8. MORPHINE SULFATE [Concomitant]
     Route: 065
  9. MORPHINE SULFATE [Concomitant]
     Route: 042

REACTIONS (6)
  - Pain [Unknown]
  - Vomiting [Unknown]
  - Hyperhidrosis [Unknown]
  - Somnolence [Unknown]
  - Feeling cold [Unknown]
  - Dry skin [Unknown]
